FAERS Safety Report 5446674-8 (Version None)
Quarter: 2007Q3

REPORT INFORMATION
  Report Type: 
  Country: None (occurrence: None)
  Receive Date: 20070907
  Receipt Date: 20070830
  Transmission Date: 20080115
  Serious: Yes (Life-Threatening, Hospitalization, Disabling, Other)
  Sender: FDA-Public Use
  Company Number: GB-PFIZER INC-2007069157

PATIENT
  Sex: Male

DRUGS (5)
  1. LIPITOR [Suspect]
     Indication: HYPERCHOLESTEROLAEMIA
     Route: 048
     Dates: start: 20060401, end: 20070201
  2. ALL OTHER THERAPEUTIC PRODUCTS [Concomitant]
  3. ASPIRIN [Concomitant]
     Route: 048
  4. ALLOPURINOL [Concomitant]
     Route: 048
  5. BISOPROLOL [Concomitant]
     Route: 048

REACTIONS (9)
  - ATRIAL SEPTAL DEFECT [None]
  - CARDIAC ARREST [None]
  - CEREBROVASCULAR ACCIDENT [None]
  - DIABETES MELLITUS [None]
  - MUSCLE SPASMS [None]
  - OVERWEIGHT [None]
  - PARALYSIS [None]
  - RENAL FAILURE [None]
  - RHABDOMYOLYSIS [None]
